FAERS Safety Report 4351138-9 (Version None)
Quarter: 2004Q2

REPORT INFORMATION
  Report Type: 
  Country: None (occurrence: None)
  Receive Date: 20040428
  Receipt Date: 20030807
  Transmission Date: 20050107
  Serious: Yes (Other)
  Sender: FDA-Public Use
  Company Number: US-JNJFOC-20030802054

PATIENT
  Age: 29 Year
  Sex: Female

DRUGS (3)
  1. ULTRAM [Suspect]
     Indication: BACK PAIN
     Dosage: UP TO 20 TABLETS DAILY
  2. TOPAMAX [Concomitant]
  3. LEXAPRO (ALL OTHER THERAPEUTIC PRODUCTS) [Concomitant]

REACTIONS (3)
  - CONVULSION [None]
  - DRUG DEPENDENCE [None]
  - DRUG WITHDRAWAL SYNDROME [None]
